FAERS Safety Report 5342310-X (Version None)
Quarter: 2007Q2

REPORT INFORMATION
  Report Type: 
  Country: None (occurrence: None)
  Receive Date: 20070601
  Receipt Date: 20070419
  Transmission Date: 20071010
  Serious: No
  Sender: FDA-Public Use
  Company Number: A0647772A

PATIENT
  Age: 54 Year
  Sex: Female

DRUGS (1)
  1. ALLI [Suspect]
     Dates: start: 20070417, end: 20070417

REACTIONS (7)
  - HEADACHE [None]
  - HYPERSENSITIVITY [None]
  - OEDEMA PERIPHERAL [None]
  - PARAESTHESIA [None]
  - PRURITUS GENERALISED [None]
  - SLEEP DISORDER [None]
  - WEIGHT INCREASED [None]
